FAERS Safety Report 5900018-3 (Version None)
Quarter: 2008Q3

REPORT INFORMATION
  Report Type: 
  Country: None (occurrence: None)
  Receive Date: 20080925
  Receipt Date: 20080925
  Transmission Date: 20090109
  Serious: Yes (Other)
  Sender: FDA-Public Use
  Company Number: None

PATIENT
  Sex: Female
  Weight: 104.3273 kg

DRUGS (1)
  1. VYTORIN [Suspect]
     Indication: LOW DENSITY LIPOPROTEIN INCREASED
     Dosage: 1 TABLET BEDTIME PO
     Route: 048
     Dates: start: 20061201, end: 20080801

REACTIONS (2)
  - LOW DENSITY LIPOPROTEIN ABNORMAL [None]
  - RESTLESS LEGS SYNDROME [None]
